FAERS Safety Report 13946948 (Version 3)
Quarter: 2017Q4

REPORT INFORMATION
  Report Type: Spontaneous
  Country: US (occurrence: US)
  Receive Date: 20170907
  Receipt Date: 20171027
  Transmission Date: 20180320
  Serious: No
  Sender: FDA-Public Use
  Company Number: US-GLAXOSMITHKLINE-US2017135886

PATIENT
  Sex: Female
  Weight: 74.38 kg

DRUGS (1)
  1. VENTOLIN HFA [Suspect]
     Active Substance: ALBUTEROL SULFATE
     Indication: DYSPNOEA
     Dosage: 2 PUFF(S), BID
     Route: 055
     Dates: start: 20160908

REACTIONS (4)
  - Wrong technique in product usage process [Unknown]
  - Product quality issue [Unknown]
  - Dyspnoea exertional [Unknown]
  - Dyspnoea [Recovering/Resolving]
